FAERS Safety Report 9202646 (Version 4)
Quarter: 2013Q4

REPORT INFORMATION
  Report Type: Report from Study
  Country: GB (occurrence: GB)
  Receive Date: 20130401
  Receipt Date: 20131114
  Transmission Date: 20140711
  Serious: Yes (Death, Life-Threatening, Hospitalization, Other)
  Sender: FDA-Public Use
  Company Number: GB-CELGENEUS-167-21880-13033480

PATIENT
  Age: 59 Year
  Sex: Female

DRUGS (8)
  1. REVLIMID [Suspect]
     Indication: PLASMA CELL MYELOMA
     Route: 048
     Dates: start: 20130125
  2. REVLIMID [Suspect]
     Route: 048
     Dates: start: 20130211, end: 20130307
  3. REVLIMID [Suspect]
     Dosage: 3.75 MILLIGRAM
     Route: 048
     Dates: start: 20120125, end: 20120214
  4. REVLIMID [Suspect]
     Dosage: 10 MILLIGRAM
     Route: 048
     Dates: start: 20120222, end: 20120313
  5. REVLIMID [Suspect]
     Dosage: 5 MILLIGRAM
     Route: 048
     Dates: start: 20120328, end: 20120417
  6. DEXAMETHASONE [Suspect]
     Indication: PLASMA CELL MYELOMA
     Dosage: TOTAL MONTHLY DOSE
     Route: 048
     Dates: start: 20120125, end: 20120128
  7. DEXAMETHASONE [Suspect]
     Dosage: TOTAL MONTHLY DOSE
     Route: 048
     Dates: start: 20121217, end: 20121220
  8. DEXAMETHASONE [Suspect]
     Dosage: TOTAL MONTHLY DOSE
     Route: 048
     Dates: start: 20130212, end: 20130215

REACTIONS (2)
  - Lung adenocarcinoma metastatic [Fatal]
  - Pleural effusion [Not Recovered/Not Resolved]
